FAERS Safety Report 6764017-4 (Version None)
Quarter: 2010Q2

REPORT INFORMATION
  Report Type: 
  Country: None (occurrence: None)
  Receive Date: 20100610
  Receipt Date: 20090528
  Transmission Date: 20101027
  Serious: No
  Sender: FDA-Public Use
  Company Number: US-ASTRAZENECA-2009UW13699

PATIENT
  Age: 77 Year
  Sex: Female
  Weight: 58.1 kg

DRUGS (5)
  1. FASLODEX [Suspect]
     Route: 058
  2. PROPRANOLOL [Concomitant]
     Indication: HYPERTENSION
  3. LISINOPRIL [Concomitant]
     Indication: HYPERTENSION
  4. CALTRATE [Concomitant]
     Indication: OSTEOPOROSIS
  5. ALENDRONATE SODIUM [Concomitant]
     Indication: OSTEOPOROSIS

REACTIONS (1)
  - BLOOD PRESSURE INCREASED [None]
